FAERS Safety Report 6754402-9 (Version None)
Quarter: 2010Q2

REPORT INFORMATION
  Report Type: 
  Country: None (occurrence: None)
  Receive Date: 20100603
  Receipt Date: 20100211
  Transmission Date: 20101027
  Serious: No
  Sender: FDA-Public Use
  Company Number: US-ABBOTT-10P-163-0626662-00

PATIENT
  Sex: Female
  Weight: 59.474 kg

DRUGS (9)
  1. SIMCOR [Suspect]
     Indication: BLOOD CHOLESTEROL INCREASED
     Dosage: 1 - 500/20 MG TAB DAILY
     Dates: start: 20100101, end: 20100201
  2. SIMCOR [Suspect]
     Dosage: 2 - 500/20 MG TAB DAILY
     Dates: start: 20100201, end: 20100212
  3. AMBIEN CR [Concomitant]
     Indication: SLEEP DISORDER
  4. LEXAPRO [Concomitant]
     Indication: MOOD SWINGS
  5. NORVASC [Concomitant]
     Indication: HYPERTENSION
  6. FOSAMAX [Concomitant]
     Indication: OSTEOPOROSIS
  7. FISH OIL [Concomitant]
     Indication: MEDICAL DIET
  8. CALCIUM CARBONATE [Concomitant]
     Indication: MINERAL SUPPLEMENTATION
  9. MULTIPLE VITAMINS [Concomitant]
     Indication: VITAMIN SUPPLEMENTATION

REACTIONS (2)
  - FURUNCLE [None]
  - PRURITUS GENERALISED [None]
